FAERS Safety Report 8572825-2 (Version None)
Quarter: 2012Q2

REPORT INFORMATION
  Report Type: 
  Country: None (occurrence: None)
  Receive Date: 20120423
  Receipt Date: 20101013
  Transmission Date: 20120825
  Serious: Yes (Other)
  Sender: FDA-Public Use
  Company Number: PHHY2010US59211

PATIENT
  Age: 74 Year
  Sex: Male
  Weight: 91 kg

DRUGS (6)
  1. FLUCONAZOLE [Concomitant]
  2. METOPROLOL TARTRATE [Concomitant]
  3. EXJADE [Suspect]
     Indication: NEOPLASM
     Dosage: 1750 MG/DAY, ORAL
     Route: 048
     Dates: start: 20100830
  4. ACTOS (PIOGLITAZONE, PIOGLITAZONE HYDROCHLORIDE) [Concomitant]
  5. PRILOSEC [Concomitant]
  6. FLOMAX [Concomitant]

REACTIONS (2)
  - BLOOD CREATININE INCREASED [None]
  - RENAL FAILURE CHRONIC [None]
